FAERS Safety Report 6213773-2 (Version None)
Quarter: 2009Q2

REPORT INFORMATION
  Report Type: 
  Country: None (occurrence: None)
  Receive Date: 20090603
  Receipt Date: 20090528
  Transmission Date: 20091009
  Serious: Yes (Hospitalization, Other)
  Sender: FDA-Public Use
  Company Number: US-AMGEN-QUU335021

PATIENT
  Sex: Female

DRUGS (13)
  1. ENBREL [Suspect]
     Indication: PSORIATIC ARTHROPATHY
     Route: 058
  2. ENBREL [Suspect]
     Indication: PSORIASIS
  3. ALPRAZOLAM [Concomitant]
  4. NEURONTIN [Concomitant]
  5. SIMVASTATIN [Concomitant]
  6. FISH OIL [Concomitant]
  7. CALCIUM WITH VITAMIN D [Concomitant]
  8. DIOVAN HCT [Concomitant]
  9. PAXIL [Concomitant]
  10. TOPROL-XL [Concomitant]
  11. COLACE [Concomitant]
  12. COUMADIN [Concomitant]
  13. ACTONEL [Concomitant]

REACTIONS (20)
  - AORTIC STENOSIS [None]
  - ASTHENIA [None]
  - CARDIAC DISORDER [None]
  - CARDIAC MURMUR [None]
  - DENTAL CARIES [None]
  - DRY EYE [None]
  - DRY MOUTH [None]
  - DRY SKIN [None]
  - DYSPNOEA [None]
  - FATIGUE [None]
  - HYPOAESTHESIA [None]
  - JOINT SWELLING [None]
  - NECK PAIN [None]
  - OSTEOARTHRITIS [None]
  - OSTEOMYELITIS [None]
  - PARAESTHESIA [None]
  - PSORIASIS [None]
  - PSORIATIC ARTHROPATHY [None]
  - PYREXIA [None]
  - THERAPEUTIC RESPONSE DECREASED [None]
